FAERS Safety Report 7676892-X (Version None)
Quarter: 2011Q3

REPORT INFORMATION
  Report Type: 
  Country: None (occurrence: None)
  Receive Date: 20110811
  Receipt Date: 20110802
  Transmission Date: 20111222
  Serious: Yes (Other)
  Sender: FDA-Public Use
  Company Number: PHHY2011DE71105

PATIENT
  Sex: Male

DRUGS (3)
  1. IBANDRONATE SODIUM [Suspect]
     Indication: HODGKIN'S DISEASE
     Dosage: UNK UKN, UNK
  2. PAMIDRONATE DISODIUM [Suspect]
     Indication: HODGKIN'S DISEASE
     Dosage: UNK UKN, UNK
     Route: 042
  3. ZOLEDRONIC ACID [Suspect]
     Indication: HODGKIN'S DISEASE
     Dosage: UNK UKN, UNK
     Route: 042

REACTIONS (2)
  - OSTEONECROSIS OF JAW [None]
  - ABSCESS JAW [None]
